FAERS Safety Report 4303274-0 (Version None)
Quarter: 2004Q1

REPORT INFORMATION
  Report Type: 
  Country: None (occurrence: None)
  Receive Date: 20040223
  Receipt Date: 20040205
  Transmission Date: 20041129
  Serious: Yes (Life-Threatening, Hospitalization)
  Sender: FDA-Public Use
  Company Number: DSA_23960_2004

PATIENT
  Age: 34 Year
  Sex: Female

DRUGS (7)
  1. LORAZEPAM [Suspect]
     Dosage: 0.5 MG Q DAY PO
     Route: 048
     Dates: start: 20040129
  2. HIRNAMIN [Suspect]
     Dosage: 5 MG Q DAY PO
     Route: 048
     Dates: start: 20040119
  3. ANAFRANIL [Suspect]
     Dosage: 25 MG Q DAY PO
     Route: 048
     Dates: start: 20040119
  4. ALPRAZOLAM [Suspect]
     Dates: start: 20040122
  5. LUVOX [Suspect]
     Dosage: 75 MG Q DAY PO
     Route: 048
     Dates: start: 20040122
  6. ROHYPNOL [Suspect]
     Dosage: 2 MG Q DAY PO
     Route: 048
     Dates: start: 20040122
  7. DEPAS [Suspect]
     Dates: start: 20040122

REACTIONS (3)
  - CARDIAC ARREST [None]
  - FALL [None]
  - SUICIDE ATTEMPT [None]
